FAERS Safety Report 9713766 (Version 1)
Quarter: 2013Q4

REPORT INFORMATION
  Report Type: Spontaneous
  Country: US (occurrence: None)
  Receive Date: 20131125
  Receipt Date: 20131125
  Transmission Date: 20140711
  Serious: Yes (Other)
  Sender: FDA-Public Use
  Company Number: None

PATIENT
  Age: 16 Year
  Sex: Male

DRUGS (1)
  1. ATAZANAVIR [Suspect]
     Indication: HIV INFECTION
     Dates: start: 201308

REACTIONS (3)
  - Ocular icterus [None]
  - Yellow skin [None]
  - Blood bilirubin increased [None]
